FAERS Safety Report 8802731 (Version 5)
Quarter: 2013Q1

REPORT INFORMATION
  Report Type: Spontaneous
  Country: US (occurrence: US)
  Receive Date: 20120921
  Receipt Date: 20130221
  Transmission Date: 20140127
  Serious: Yes (Hospitalization, Other)
  Sender: FDA-Public Use
  Company Number: US-009507513-1203USA00031

PATIENT
  Sex: Female

DRUGS (7)
  1. FOSAMAX [Suspect]
     Indication: OSTEOPOROSIS
     Dosage: 10 MG, QD
     Route: 048
     Dates: start: 199801, end: 200301
  2. FOSAMAX [Suspect]
     Indication: BONE LOSS
     Dosage: 70 MG, UNK
     Route: 048
     Dates: start: 200302, end: 2008
  3. FOSAMAX PLUS D [Suspect]
     Indication: OSTEOPOROSIS
     Dosage: UNK
     Route: 048
     Dates: end: 2010
  4. ALENDRONATE SODIUM [Suspect]
     Indication: OSTEOPOROSIS
     Dosage: 70 MG, QW
     Route: 048
     Dates: start: 200811, end: 2011
  5. SYNTHROID [Concomitant]
  6. PREMARIN [Concomitant]
     Indication: FRACTURE TREATMENT
     Dosage: UNK
     Dates: start: 19980131
  7. ACCUPRIL [Concomitant]
     Indication: HYPERTENSION
     Dosage: 10 MG, UNK

REACTIONS (77)
  - Open reduction of fracture [Unknown]
  - Subendocardial ischaemia [Unknown]
  - Troponin increased [Unknown]
  - Cardiac failure congestive [Unknown]
  - Atrial fibrillation [Recovering/Resolving]
  - Anaemia postoperative [Recovering/Resolving]
  - Renal failure [Unknown]
  - Hypotension [Unknown]
  - Cardiac failure congestive [Unknown]
  - Small intestinal obstruction [Unknown]
  - Rectal cancer [Unknown]
  - Colon operation [Unknown]
  - Tonsillectomy [Unknown]
  - Renal failure chronic [Not Recovered/Not Resolved]
  - Cerebrovascular accident [Unknown]
  - Hypoacusis [Unknown]
  - Rib fracture [Unknown]
  - Femur fracture [Unknown]
  - Ileus [Unknown]
  - Lung infiltration [Unknown]
  - Atelectasis [Unknown]
  - Femur fracture [Unknown]
  - Adhesion [Unknown]
  - Abdominal pain [Unknown]
  - Colectomy [Unknown]
  - Ileostomy [Unknown]
  - Tooth extraction [Unknown]
  - Low turnover osteopathy [Unknown]
  - Rib fracture [Unknown]
  - Haematoma [Unknown]
  - Spinal fracture [Unknown]
  - Osteoporotic fracture [Unknown]
  - Osteopenia [Unknown]
  - Cardiac disorder [Unknown]
  - Left ventricular hypertrophy [Unknown]
  - Cardiomegaly [Unknown]
  - Hypertrophic cardiomyopathy [Unknown]
  - Chronic obstructive pulmonary disease [Not Recovered/Not Resolved]
  - Pleural effusion [Not Recovered/Not Resolved]
  - Atelectasis [Unknown]
  - Acquired diaphragmatic eventration [Unknown]
  - Vascular calcification [Unknown]
  - Arthropathy [Unknown]
  - Vitamin D deficiency [Unknown]
  - Spinal column stenosis [Unknown]
  - Hypothyroidism [Unknown]
  - Amnesia [Unknown]
  - Renal mass [Unknown]
  - Pulmonary mass [Unknown]
  - Lumbar spinal stenosis [Unknown]
  - Hyponatraemia [Unknown]
  - Antidiuretic hormone abnormality [Unknown]
  - Pancreatic cyst [Unknown]
  - Thrombocytopenia [Not Recovered/Not Resolved]
  - Scapula fracture [Unknown]
  - Aortic arteriosclerosis [Unknown]
  - Spinal compression fracture [Unknown]
  - Fractured sacrum [Unknown]
  - Pubis fracture [Unknown]
  - Spinal osteoarthritis [Unknown]
  - Abdominal hernia [Unknown]
  - Hepatic cyst [Unknown]
  - Joint injury [Unknown]
  - Osteoarthritis [Unknown]
  - Femoroacetabular impingement [Unknown]
  - Phlebolith [Unknown]
  - Kyphosis [Unknown]
  - Compression fracture [Not Recovered/Not Resolved]
  - Pathological fracture [Unknown]
  - Contusion [Unknown]
  - Dementia [Unknown]
  - Depression [Unknown]
  - Eating disorder [Unknown]
  - Thinking abnormal [Unknown]
  - Scoliosis [Unknown]
  - Dysphagia [Unknown]
  - Gastrooesophageal reflux disease [Unknown]
